FAERS Safety Report 25847007 (Version 2)
Quarter: 2025Q4

REPORT INFORMATION
  Report Type: Spontaneous
  Country: US (occurrence: None)
  Receive Date: 20250925
  Receipt Date: 20251013
  Transmission Date: 20260118
  Serious: No
  Sender: INCYTE
  Company Number: US-INCYTE CORPORATION-2025IN010277

PATIENT
  Age: 65 Year

DRUGS (1)
  1. JAKAFI [Suspect]
     Active Substance: RUXOLITINIB
     Indication: Myeloproliferative neoplasm
     Dosage: 20 MILLIGRAM, BID

REACTIONS (6)
  - Oral pain [Unknown]
  - Dysphagia [Unknown]
  - Pain [Unknown]
  - Decreased activity [Unknown]
  - Fatigue [Unknown]
  - Off label use [Unknown]
